FAERS Safety Report 26088935 (Version 1)
Quarter: 2025Q4

REPORT INFORMATION
  Report Type: Spontaneous
  Country: JP (occurrence: JP)
  Receive Date: 20251125
  Receipt Date: 20251125
  Transmission Date: 20260118
  Serious: Yes (Life-Threatening, Other)
  Sender: MERCK SHARP & DOHME LLC
  Company Number: JP-009507513-1409JPN010124

PATIENT
  Age: 36 Year
  Sex: Female
  Weight: 65 kg

DRUGS (9)
  1. ROCURONIUM BROMIDE [Suspect]
     Active Substance: ROCURONIUM BROMIDE
     Indication: Neuromuscular blocking therapy
     Dosage: DOSE DESCRIPTION : 70 MG, QD?DAILY DOSE : 70 MILLIGRAM?REGIMEN DOSE : 70  MILLIGRAM
     Route: 042
     Dates: start: 20140909, end: 20140909
  2. BRIDION [Suspect]
     Active Substance: SUGAMMADEX SODIUM
     Indication: Neuromuscular blockade reversal
     Route: 042
     Dates: start: 20140909, end: 20140909
  3. DIPRIVAN [Concomitant]
     Active Substance: PROPOFOL
     Indication: General anaesthesia
     Dosage: DOSE DESCRIPTION : 47.6 ML, QD?DAILY DOSE : 47.6 MILLILITER?REGIMEN DOSE : 47.6  MILLILITER
     Route: 042
     Dates: start: 20140909, end: 20140909
  4. FENTANYL [Concomitant]
     Active Substance: FENTANYL
     Indication: General anaesthesia
     Dosage: DOSE DESCRIPTION : 200 MG, QD?DAILY DOSE : 200 MILLIGRAM?REGIMEN DOSE : 200  MILLIGRAM
     Route: 042
     Dates: start: 20140909, end: 20140909
  5. ULTIVA [Concomitant]
     Active Substance: REMIFENTANIL HYDROCHLORIDE
     Indication: General anaesthesia
     Dosage: DOSE DESCRIPTION : 0.69 MG, QD?DAILY DOSE : 0.69 MILLIGRAM?REGIMEN DOSE : 0.69  MILLIGRAM
     Route: 042
     Dates: start: 20140909, end: 20140909
  6. THIOPENTAL [Concomitant]
     Active Substance: THIOPENTAL
     Indication: General anaesthesia
     Dosage: DOSE DESCRIPTION : 350 MG, QD?DAILY DOSE : 350 MILLIGRAM?REGIMEN DOSE : 350  MILLIGRAM
     Route: 042
     Dates: start: 20140909, end: 20140909
  7. SEVOFLURANE [Concomitant]
     Active Substance: SEVOFLURANE
     Indication: General anaesthesia
     Dosage: DOSE DESCRIPTION : 1.48 ML, QD?DAILY DOSE : 1.48 MILLILITER?REGIMEN DOSE : 1.48  MILLILITER
     Route: 055
     Dates: start: 20140909, end: 20140909
  8. FLOMOXEF SODIUM [Concomitant]
     Active Substance: FLOMOXEF SODIUM
     Indication: Infection prophylaxis
     Dosage: DOSE DESCRIPTION : 1 G, QD?DAILY DOSE : 1 GRAM?REGIMEN DOSE : 1  GRAM
     Route: 042
     Dates: start: 20140909, end: 20140909
  9. OXYTOCIN [Concomitant]
     Active Substance: OXYTOCIN
     Indication: Uterine contractions during pregnancy
     Dosage: DOSE DESCRIPTION : 5 IU, QD?DAILY DOSE : 5 INTERNATIONAL UNIT?REGIMEN DOSE : 5  INTERNATIONAL UNIT
     Route: 042
     Dates: start: 20140909, end: 20140909

REACTIONS (2)
  - Anaphylactic shock [Recovered/Resolved]
  - Maternal exposure during delivery [Recovered/Resolved]

NARRATIVE: CASE EVENT DATE: 20140909
